FAERS Safety Report 17699415 (Version 2)
Quarter: 2020Q2

REPORT INFORMATION
  Report Type: Spontaneous
  Country: US (occurrence: US)
  Receive Date: 20200423
  Receipt Date: 20200505
  Transmission Date: 20200714
  Serious: Yes (Hospitalization, Other)
  Sender: FDA-Public Use
  Company Number: US-PFIZER INC-2020159195

PATIENT

DRUGS (1)
  1. RELPAX [Suspect]
     Active Substance: ELETRIPTAN HYDROBROMIDE
     Dosage: UNK

REACTIONS (8)
  - Pain [Unknown]
  - Otitis media acute [Unknown]
  - Migraine [Unknown]
  - Deafness [Unknown]
  - Sciatica [Unknown]
  - Migraine with aura [Unknown]
  - Road traffic accident [Unknown]
  - Tooth infection [Unknown]

NARRATIVE: CASE EVENT DATE: 2005
